FAERS Safety Report 4353514-7 (Version None)
Quarter: 2004Q2

REPORT INFORMATION
  Report Type: 
  Country: None (occurrence: None)
  Receive Date: 20040505
  Receipt Date: 20040323
  Transmission Date: 20050107
  Serious: Yes (Hospitalization)
  Sender: FDA-Public Use
  Company Number: BR-ROCHE-362491

PATIENT
  Age: 23 Year
  Sex: Female
  Weight: 52 kg

DRUGS (13)
  1. DACLIZUMAB [Suspect]
     Route: 042
     Dates: start: 20031110, end: 20031110
  2. DACLIZUMAB [Suspect]
     Route: 042
     Dates: start: 20031124, end: 20031210
  3. DACLIZUMAB [Suspect]
     Route: 042
     Dates: start: 20031223, end: 20040106
  4. MYCOPHENOLATE MOFETIL [Suspect]
     Route: 048
     Dates: start: 20031111, end: 20040315
  5. MYCOPHENOLATE MOFETIL [Suspect]
     Route: 048
     Dates: start: 20040317
  6. TACROLIMUS [Suspect]
     Route: 048
     Dates: start: 20031111, end: 20031125
  7. TACROLIMUS [Suspect]
     Route: 048
     Dates: start: 20031125
  8. PREDNISONE [Suspect]
     Route: 048
     Dates: start: 20031110
  9. PREDNISONE [Suspect]
     Route: 048
     Dates: start: 20031120
  10. PREDNISONE [Suspect]
     Route: 048
     Dates: start: 20031224
  11. PREDNISONE [Suspect]
     Route: 048
     Dates: start: 20040120
  12. RANITIDINE [Concomitant]
     Route: 048
     Dates: start: 20031110
  13. SULPHAMETHOXAZOLE [Concomitant]
     Route: 048
     Dates: start: 20031110

REACTIONS (9)
  - ABDOMINAL PAIN [None]
  - BLOOD CULTURE POSITIVE [None]
  - ENTEROCOCCAL INFECTION [None]
  - HEART RATE INCREASED [None]
  - HYPOTENSION [None]
  - LEUKOCYTOSIS [None]
  - PYELONEPHRITIS [None]
  - SEPSIS [None]
  - SOMNOLENCE [None]
